FAERS Safety Report 8198297-8 (Version None)
Quarter: 2012Q1

REPORT INFORMATION
  Report Type: 
  Country: None (occurrence: None)
  Receive Date: 20120309
  Receipt Date: 20120229
  Transmission Date: 20120608
  Serious: Yes (Other)
  Sender: FDA-Public Use
  Company Number: US-MERCK-1203USA00135

PATIENT
  Age: 45 Year
  Sex: Male

DRUGS (1)
  1. EMEND [Suspect]
     Indication: CHEMOTHERAPY
     Route: 048
     Dates: start: 20120208, end: 20120215

REACTIONS (2)
  - ADVERSE EVENT [None]
  - SHOCK [None]
